FAERS Safety Report 8844267 (Version 3)
Quarter: 2013Q4

REPORT INFORMATION
  Report Type: Spontaneous
  Country: US (occurrence: US)
  Receive Date: 20121017
  Receipt Date: 20131212
  Transmission Date: 20140711
  Serious: Yes (Hospitalization, Other)
  Sender: FDA-Public Use
  Company Number: US-BAYER-2012-107785

PATIENT
  Age: 22 Year
  Sex: Female

DRUGS (8)
  1. YAZ [Suspect]
     Indication: ACNE
     Dosage: UNK
     Route: 048
     Dates: start: 200606, end: 201205
  2. YAZ [Suspect]
     Indication: PREMENSTRUAL SYNDROME
  3. YAZ [Suspect]
     Indication: GENITAL HAEMORRHAGE
  4. YASMIN [Suspect]
     Dosage: UNK
     Route: 048
     Dates: start: 200606, end: 201205
  5. KARIVA [Concomitant]
     Indication: MENSTRUAL CYCLE MANAGEMENT
     Dosage: UNK
     Dates: start: 201208
  6. KARIVA [Concomitant]
     Indication: OVARIAN CYST
  7. ETHINYLESTRAD W/FERROUS FUM/NORETHISTER ACET [Concomitant]
     Dosage: UNK
     Dates: start: 201206, end: 201207
  8. WELLBUTRIN [Concomitant]
     Dosage: 75 MG, TID

REACTIONS (9)
  - Gallbladder disorder [None]
  - Cholecystitis chronic [None]
  - Biliary dyskinesia [None]
  - Pain [None]
  - Emotional distress [None]
  - Injury [None]
  - Anxiety [None]
  - Psychological trauma [None]
  - Mental disorder [None]
